FAERS Safety Report 6999765-4 (Version None)
Quarter: 2010Q3

REPORT INFORMATION
  Report Type: 
  Country: None (occurrence: None)
  Receive Date: 20100920
  Receipt Date: 20100416
  Transmission Date: 20110219
  Serious: Yes (Hospitalization)
  Sender: FDA-Public Use
  Company Number: US-ASTRAZENECA-2010SE15163

PATIENT
  Age: 41 Year
  Sex: Female
  Weight: 113.4 kg

DRUGS (23)
  1. SEROQUEL [Suspect]
     Indication: SCHIZOAFFECTIVE DISORDER BIPOLAR TYPE
     Route: 048
     Dates: start: 20060101
  2. SEROQUEL [Suspect]
     Indication: POST-TRAUMATIC STRESS DISORDER
     Route: 048
     Dates: start: 20060101
  3. SEROQUEL [Suspect]
     Route: 048
  4. SEROQUEL [Suspect]
     Route: 048
  5. SEROQUEL [Suspect]
     Route: 048
  6. SEROQUEL [Suspect]
     Route: 048
  7. SEROQUEL [Suspect]
     Route: 048
     Dates: start: 20060201
  8. SEROQUEL [Suspect]
     Route: 048
     Dates: start: 20060201
  9. LISINOPRIL [Concomitant]
  10. INDERAL [Concomitant]
  11. LAMICTAL [Concomitant]
  12. AMBIEN [Concomitant]
  13. XANAX [Concomitant]
  14. ADDERALL 10 [Concomitant]
  15. TOPAMAX [Concomitant]
  16. POTASSIUM [Concomitant]
  17. LASIX [Concomitant]
  18. CELEXA [Concomitant]
  19. ANTIVERT [Concomitant]
  20. NEURONTIN [Concomitant]
  21. COLACE [Concomitant]
  22. PHENERGAN [Concomitant]
  23. MIDRIN [Concomitant]

REACTIONS (2)
  - CONFUSIONAL STATE [None]
  - SUICIDE ATTEMPT [None]
